FAERS Safety Report 7120508-8 (Version None)
Quarter: 2010Q4

REPORT INFORMATION
  Report Type: 
  Country: None (occurrence: None)
  Receive Date: 20101115
  Receipt Date: 20101103
  Transmission Date: 20110411
  Serious: Yes (Other)
  Sender: FDA-Public Use
  Company Number: US-1183504

PATIENT
  Age: 58 Year
  Sex: Female
  Weight: 87.0906 kg

DRUGS (2)
  1. NEVANAC 0.1% OPHTHALMIC SUSPENSION [Suspect]
     Indication: VITREOUS DISORDER
     Dosage: 1 GTT BID, OD OPHTHALMIC
     Route: 047
     Dates: start: 20100917, end: 20100919
  2. LEVOTHYROXINE SODIUM [Concomitant]

REACTIONS (4)
  - CHEST PAIN [None]
  - DYSPNOEA [None]
  - HEADACHE [None]
  - NAUSEA [None]
